FAERS Safety Report 21213242 (Version 1)
Quarter: 2022Q3

REPORT INFORMATION
  Report Type: Report from Study
  Country: US (occurrence: US)
  Receive Date: 20220815
  Receipt Date: 20220815
  Transmission Date: 20221027
  Serious: Yes (Death, Other)
  Sender: FDA-Public Use
  Company Number: US-Taiho Oncology Inc-EU-2022-01815

PATIENT
  Age: 80 Year
  Sex: Female
  Weight: 57.204 kg

DRUGS (2)
  1. LONSURF [Suspect]
     Active Substance: TIPIRACIL HYDROCHLORIDE\TRIFLURIDINE
     Indication: Colon cancer
     Dosage: UNKNOWN CYCLE
     Route: 048
     Dates: start: 202206
  2. XELODA [Concomitant]
     Active Substance: CAPECITABINE

REACTIONS (3)
  - Death [Fatal]
  - Bacterial sepsis [Unknown]
  - Localised infection [Unknown]

NARRATIVE: CASE EVENT DATE: 20220806
